FAERS Safety Report 11021809 (Version 2)
Quarter: 2015Q2

REPORT INFORMATION
  Report Type: Spontaneous
  Country: US (occurrence: US)
  Receive Date: 20150413
  Receipt Date: 20150417
  Transmission Date: 20150821
  Serious: Yes (Other)
  Sender: FDA-Public Use
  Company Number: US-PFIZER INC-2015124983

PATIENT
  Age: 68 Year
  Sex: Female
  Weight: 91 kg

DRUGS (2)
  1. PROCARDIA XL [Suspect]
     Active Substance: NIFEDIPINE
     Dosage: UNK
  2. PROCARDIA [Suspect]
     Active Substance: NIFEDIPINE
     Dosage: UNK

REACTIONS (5)
  - Myocardial infarction [Unknown]
  - Haemorrhage [Unknown]
  - Cardiac failure congestive [Unknown]
  - Atrioventricular block [Unknown]
  - Thrombosis [Unknown]
